FAERS Safety Report 22224165 (Version 1)
Quarter: 2023Q2

REPORT INFORMATION
  Report Type: Spontaneous
  Country: US (occurrence: None)
  Receive Date: 20230417
  Receipt Date: 20230417
  Transmission Date: 20230721
  Serious: Yes (Hospitalization)
  Sender: FDA-Public Use
  Company Number: None

PATIENT
  Age: 52 Year
  Sex: Male
  Weight: 70 kg

DRUGS (2)
  1. NIRMATRELVIR\RITONAVIR [Suspect]
     Active Substance: NIRMATRELVIR\RITONAVIR
     Indication: COVID-19
     Dates: start: 20230131, end: 20230204
  2. CARBAMAZEPINE [Suspect]
     Active Substance: CARBAMAZEPINE

REACTIONS (7)
  - Abdominal discomfort [None]
  - Nausea [None]
  - Vomiting [None]
  - Hyponatraemia [None]
  - Encephalopathy [None]
  - Drug level above therapeutic [None]
  - Drug interaction [None]

NARRATIVE: CASE EVENT DATE: 20230205
